FAERS Safety Report 4373352-9 (Version None)
Quarter: 2004Q2

REPORT INFORMATION
  Report Type: 
  Country: None (occurrence: None)
  Receive Date: 20040603
  Receipt Date: 20040518
  Transmission Date: 20050107
  Serious: Yes (Hospitalization)
  Sender: FDA-Public Use
  Company Number: 2004UW10311

PATIENT
  Age: 69 Year
  Sex: Female
  Weight: 65.7716 kg

DRUGS (4)
  1. IRESSA [Suspect]
     Indication: LUNG DISORDER
     Dosage: 250 MG DAILY; PO
     Route: 048
  2. LANOXIN [Concomitant]
  3. PREVACID [Concomitant]
  4. TAMBOCOR [Concomitant]

REACTIONS (3)
  - ANAEMIA [None]
  - INTERSTITIAL LUNG DISEASE [None]
  - PULMONARY OEDEMA [None]
